FAERS Safety Report 9716316 (Version 1)
Quarter: 2013Q4

REPORT INFORMATION
  Report Type: Spontaneous
  Country: US (occurrence: None)
  Receive Date: 20131126
  Receipt Date: 20131126
  Transmission Date: 20140711
  Serious: Yes (Hospitalization)
  Sender: FDA-Public Use
  Company Number: None

PATIENT
  Age: 8 Month
  Sex: Male
  Weight: 8.57 kg

DRUGS (4)
  1. CYCLOPHOSPHAMIDE [Suspect]
     Dates: start: 20131118
  2. ETOPOSIDE [Suspect]
     Dates: start: 20131118
  3. LEUCOVORIN CALCIUM [Suspect]
     Dates: start: 20131109
  4. METHOTREXATE [Suspect]
     Dosage: DAY 1 DOSE GIVEN 10/22/13    ?DAY 8 DELAYED DUE TO TOXICITIES GIVEN ON 11/6/123.
     Dates: start: 20131106

REACTIONS (9)
  - Diarrhoea [None]
  - Culture stool positive [None]
  - Clostridium test positive [None]
  - Dermatitis diaper [None]
  - Pseudomonas test positive [None]
  - Alanine aminotransferase increased [None]
  - Aspartate aminotransferase increased [None]
  - Mouth ulceration [None]
  - Hypophagia [None]
